FAERS Safety Report 8969835 (Version 1)
Quarter: 2012Q4

REPORT INFORMATION
  Report Type: 
  Country: JP (occurrence: JP)
  Receive Date: 20121218
  Receipt Date: 20121218
  Transmission Date: 20130627
  Serious: Yes (Other)
  Sender: FDA-Public Use
  Company Number: JP-ROXANE LABORATORIES, INC.-2012-RO-02573RO

PATIENT
  Age: 2 Year
  Sex: Male

DRUGS (7)
  1. METHOTREXATE [Suspect]
     Indication: PROPHYLAXIS AGAINST GRAFT VERSUS HOST DISEASE
  2. METHOTREXATE [Suspect]
     Indication: GRAFT VERSUS HOST DISEASE
  3. CYCLOPHOSPHAMIDE TABLETS USP [Suspect]
     Indication: STEM CELL TRANSPLANT
  4. ETOPOSIDE [Suspect]
     Indication: STEM CELL TRANSPLANT
  5. TACROLIMUS [Suspect]
     Indication: PROPHYLAXIS AGAINST GRAFT VERSUS HOST DISEASE
  6. PREDNISOLONE [Suspect]
     Indication: GRAFT VERSUS HOST DISEASE
  7. PREDNISOLONE [Suspect]

REACTIONS (6)
  - Adenovirus infection [Recovered/Resolved]
  - Acute graft versus host disease [Recovered/Resolved]
  - Hydronephrosis [Unknown]
  - Lymphopenia [Recovered/Resolved]
  - Encephalitis [Unknown]
  - Neurological decompensation [Unknown]
